FAERS Safety Report 6127448-1 (Version None)
Quarter: 2009Q1

REPORT INFORMATION
  Report Type: 
  Country: None (occurrence: None)
  Receive Date: 20090323
  Receipt Date: 20090317
  Transmission Date: 20090719
  Serious: Yes (Other)
  Sender: FDA-Public Use
  Company Number: US-ASTRAZENECA-2009UW06918

PATIENT
  Age: 82 Year
  Sex: Female

DRUGS (2)
  1. SEROQUEL [Suspect]
     Indication: AGITATION
     Dosage: 25 MG
     Route: 048
  2. SYNTHROID [Concomitant]

REACTIONS (1)
  - HYPOAESTHESIA [None]
